FAERS Safety Report 6369472-X (Version None)
Quarter: 2009Q3

REPORT INFORMATION
  Report Type: 
  Country: None (occurrence: None)
  Receive Date: 20090923
  Receipt Date: 20070403
  Transmission Date: 20100115
  Serious: Yes (Hospitalization, Other)
  Sender: FDA-Public Use
  Company Number: US-ASTRAZENECA-2006UW09863

PATIENT
  Age: 38 Year
  Sex: Male
  Weight: 94.3 kg

DRUGS (6)
  1. SEROQUEL [Suspect]
     Indication: DEPRESSION
     Route: 048
     Dates: start: 19980101, end: 20000101
  2. SEROQUEL [Suspect]
     Route: 048
     Dates: start: 20040310
  3. LISINOPRIL [Concomitant]
     Indication: HYPERTENSION
     Dosage: 2.5-10 MG
     Route: 048
     Dates: start: 20030807
  4. LIPITOR [Concomitant]
     Indication: DYSLIPIDAEMIA
     Route: 048
     Dates: start: 20030807
  5. ASPIRIN [Concomitant]
     Route: 048
     Dates: start: 20060727
  6. KLONOPIN [Concomitant]
     Route: 048
     Dates: start: 20060727

REACTIONS (11)
  - BLOOD GLUCOSE INCREASED [None]
  - DIABETES MELLITUS [None]
  - DIABETES MELLITUS INADEQUATE CONTROL [None]
  - DIABETIC KETOACIDOSIS [None]
  - DIABETIC RETINOPATHY [None]
  - HYPOGLYCAEMIA [None]
  - INSULIN-REQUIRING TYPE 2 DIABETES MELLITUS [None]
  - OVERDOSE [None]
  - PANCREATITIS [None]
  - TYPE 1 DIABETES MELLITUS [None]
  - TYPE 2 DIABETES MELLITUS [None]
